FAERS Safety Report 18439330 (Version 2)
Quarter: 2021Q1

REPORT INFORMATION
  Report Type: Spontaneous
  Country: DE (occurrence: DE)
  Receive Date: 20201028
  Receipt Date: 20210215
  Transmission Date: 20210419
  Serious: Yes (Death, Hospitalization)
  Sender: FDA-Public Use
  Company Number: DE-BAXTER-2020BAX021895

PATIENT
  Age: 55 Year
  Sex: Female
  Weight: 81.3 kg

DRUGS (3)
  1. ENDOXAN 1G [Suspect]
     Active Substance: CYCLOPHOSPHAMIDE
     Dosage: DOSAGE FORM: INJECTION FOR INFUSION
     Route: 042
     Dates: start: 20200423, end: 20200426
  2. ENDOXAN 1G [Suspect]
     Active Substance: CYCLOPHOSPHAMIDE
     Indication: PLASMA CELL MYELOMA
     Dosage: DOSAGE FORM: INJECTION FOR INFUSION
     Route: 042
     Dates: start: 20181121, end: 20181123
  3. DOXIL [Suspect]
     Active Substance: DOXORUBICIN HYDROCHLORIDE
     Indication: PLASMA CELL MYELOMA
     Dosage: DAILY
     Route: 065
     Dates: start: 20200423, end: 20200426

REACTIONS (2)
  - Pneumonia [Fatal]
  - Septic shock [Fatal]

NARRATIVE: CASE EVENT DATE: 20200427
